FAERS Safety Report 15214274 (Version 1)
Quarter: 2018Q3

REPORT INFORMATION
  Report Type: Spontaneous
  Country: NL (occurrence: NL)
  Receive Date: 20180730
  Receipt Date: 20180730
  Transmission Date: 20181010
  Serious: Yes (Hospitalization)
  Sender: FDA-Public Use
  Company Number: PHHY2018NL053474

PATIENT
  Sex: Male

DRUGS (1)
  1. DURATEARS [Suspect]
     Active Substance: MINERAL OIL EMULSION\PETROLATUM
     Indication: PRODUCT USED FOR UNKNOWN INDICATION
     Route: 047

REACTIONS (1)
  - Feeling abnormal [Unknown]
